FAERS Safety Report 5724359-8 (Version None)
Quarter: 2008Q2

REPORT INFORMATION
  Report Type: 
  Country: None (occurrence: None)
  Receive Date: 20080428
  Receipt Date: 20080417
  Transmission Date: 20081010
  Serious: Yes (Other)
  Sender: FDA-Public Use
  Company Number: 2008AL002402

PATIENT
  Age: 38 Year
  Sex: Female

DRUGS (2)
  1. PROPRANOLOL [Suspect]
     Indication: MIGRAINE
     Dosage: 40 MG;TID;PO
     Route: 048
     Dates: start: 20070801, end: 20080201
  2. PRIADEL [Concomitant]

REACTIONS (7)
  - DISTURBANCE IN ATTENTION [None]
  - MENTAL DISORDER [None]
  - MOOD SWINGS [None]
  - NIGHTMARE [None]
  - PSYCHOTIC DISORDER [None]
  - SUICIDAL IDEATION [None]
  - THINKING ABNORMAL [None]
